FAERS Safety Report 25763783 (Version 1)
Quarter: 2025Q3

REPORT INFORMATION
  Report Type: Spontaneous
  Country: US (occurrence: US)
  Receive Date: 20250905
  Receipt Date: 20250905
  Transmission Date: 20251020
  Serious: No
  Sender: DOMPE FARMACEUTICI
  Company Number: US-FARMAPROD-202412-4142

PATIENT
  Sex: Male

DRUGS (18)
  1. OXERVATE [Suspect]
     Active Substance: CENEGERMIN-BKBJ
     Indication: Neurotrophic keratopathy
     Route: 047
     Dates: start: 20241202
  2. OXERVATE [Suspect]
     Active Substance: CENEGERMIN-BKBJ
  3. LYSINE [Concomitant]
     Active Substance: LYSINE
  4. TYRVAYA [Concomitant]
     Active Substance: VARENICLINE TARTRATE
  5. TAMSULOSIN HYDROCHLORIDE [Concomitant]
     Active Substance: TAMSULOSIN HYDROCHLORIDE
  6. LEVETIRACETAM [Concomitant]
     Active Substance: LEVETIRACETAM
  7. OMEPRAZOLE [Concomitant]
     Active Substance: OMEPRAZOLE
  8. FLONASE ALLERGY RELIEF [Concomitant]
     Active Substance: FLUTICASONE PROPIONATE
  9. VITAMINS [Concomitant]
     Active Substance: VITAMINS
  10. ZINC-15 [Concomitant]
  11. MELATONIN [Concomitant]
     Active Substance: MELATONIN
  12. SYNTHROID [Concomitant]
     Active Substance: LEVOTHYROXINE SODIUM
  13. FINASTERIDE [Concomitant]
     Active Substance: FINASTERIDE
  14. FAMOTIDINE [Concomitant]
     Active Substance: FAMOTIDINE
  15. REFRESH OPTIVE MEGA-3 [Concomitant]
     Active Substance: CARBOXYMETHYLCELLULOSE SODIUM\GLYCERIN\POLYSORBATE 80
  16. XIIDRA [Concomitant]
     Active Substance: LIFITEGRAST
  17. MOXIFLOXACIN [Concomitant]
     Active Substance: MOXIFLOXACIN
  18. MIEBO [Concomitant]
     Active Substance: PERFLUOROHEXYLOCTANE

REACTIONS (2)
  - Periorbital pain [Unknown]
  - Inappropriate schedule of product administration [Unknown]
